FAERS Safety Report 17063615 (Version 1)
Quarter: 2019Q4

REPORT INFORMATION
  Report Type: Spontaneous
  Country: GB (occurrence: GB)
  Receive Date: 20191122
  Receipt Date: 20191122
  Transmission Date: 20200122
  Serious: Yes (Hospitalization)
  Sender: FDA-Public Use
  Company Number: GB-TEVA-2019-GB-1139142

PATIENT
  Sex: Female

DRUGS (7)
  1. DESOGESTREL [Concomitant]
     Active Substance: DESOGESTREL
  2. TEMAZEPAM. [Concomitant]
     Active Substance: TEMAZEPAM
  3. FLUPENTIXOL [Suspect]
     Active Substance: FLUPENTIXOL
     Dosage: 200 MG
     Route: 030
  4. CETIRIZINE [Concomitant]
     Active Substance: CETIRIZINE HYDROCHLORIDE
  5. DIAZEPAM. [Suspect]
     Active Substance: DIAZEPAM
     Dosage: 60 MG
     Route: 048
  6. CITRIC ACID [Concomitant]
     Active Substance: CITRIC ACID MONOHYDRATE
  7. IBUPROFEN. [Concomitant]
     Active Substance: IBUPROFEN

REACTIONS (1)
  - Neuroleptic malignant syndrome [Recovered/Resolved]
